FAERS Safety Report 7359910-8 (Version None)
Quarter: 2011Q1

REPORT INFORMATION
  Report Type: 
  Country: None (occurrence: None)
  Receive Date: 20110317
  Receipt Date: 20110304
  Transmission Date: 20110831
  Serious: Yes (Hospitalization)
  Sender: FDA-Public Use
  Company Number: DE-GENENTECH-307466

PATIENT
  Sex: Female

DRUGS (17)
  1. RATIOGRASTIM [Concomitant]
     Indication: PRODUCT USED FOR UNKNOWN INDICATION
     Dosage: 30 MIU, UNK
     Dates: start: 20100408
  2. VALETTE [Concomitant]
     Indication: PRODUCT USED FOR UNKNOWN INDICATION
     Dosage: 1 DF, UNK
     Dates: start: 20100404
  3. ETOPOSIDE [Suspect]
     Indication: HODGKIN'S DISEASE
     Dosage: 200 MG/M2, UNK
     Route: 042
     Dates: start: 20100120
  4. DOXORUBICIN HCL [Suspect]
     Indication: HODGKIN'S DISEASE
     Dosage: UNK
     Route: 042
     Dates: start: 20100620
  5. CYCLOPHOSPHAMIDE [Suspect]
     Indication: HODGKIN'S DISEASE
     Dosage: 1250 MG/M2, UNK
     Route: 042
     Dates: start: 20100620
  6. CIPROFLOXACIN [Suspect]
     Indication: PRODUCT USED FOR UNKNOWN INDICATION
     Dosage: 500 MG, UNK
     Route: 065
     Dates: start: 20100401
  7. VINCRISTINE [Suspect]
     Indication: HODGKIN'S DISEASE
     Dosage: 1.4 MG/M2, UNK
     Route: 042
  8. VFEND [Suspect]
     Indication: PRODUCT USED FOR UNKNOWN INDICATION
     Dosage: 200 MG, UNK
     Route: 065
     Dates: start: 20100813, end: 20100917
  9. OMEPRAZOLE [Concomitant]
     Indication: PRODUCT USED FOR UNKNOWN INDICATION
     Dosage: 20 MG, UNK
     Dates: start: 20100401
  10. PROCARBAZINE HYDROCHLORIDE [Suspect]
     Indication: HODGKIN'S DISEASE
     Dosage: 100 MG/M2, UNK
     Route: 065
     Dates: start: 20100620
  11. RITUXIMAB [Suspect]
     Indication: HODGKIN'S DISEASE
     Dosage: 375 MG/M2, UNK
     Route: 042
     Dates: start: 20100620
  12. ADRIAMYCIN PFS [Suspect]
     Indication: HODGKIN'S DISEASE
     Dosage: 35 MG/M2, UNK
     Route: 065
  13. PREDNISONE TAB [Suspect]
     Indication: HODGKIN'S DISEASE
     Dosage: 40 MG/M2, UNK
     Route: 065
     Dates: start: 20100620, end: 20100920
  14. COTRIM [Concomitant]
     Indication: PRODUCT USED FOR UNKNOWN INDICATION
     Dosage: 1 DF, Q3W
     Dates: start: 20100401
  15. BLEOMYCIN SULFATE [Suspect]
     Indication: HODGKIN'S DISEASE
     Dosage: 10 MG/M2, UNK
     Route: 065
  16. VFEND [Suspect]
     Dosage: 200 MG, UNK
     Route: 065
     Dates: start: 20100918, end: 20100919
  17. ACYCLOVIR [Concomitant]
     Indication: PRODUCT USED FOR UNKNOWN INDICATION
     Dosage: 400 MG, UNK
     Dates: start: 20100401

REACTIONS (2)
  - PSYCHOTIC DISORDER [None]
  - STAPHYLOCOCCAL INFECTION [None]
